FAERS Safety Report 7693543-9 (Version None)
Quarter: 2011Q3

REPORT INFORMATION
  Report Type: 
  Country: None (occurrence: None)
  Receive Date: 20110816
  Receipt Date: 20110801
  Transmission Date: 20111222
  Serious: Yes (Death, Other)
  Sender: FDA-Public Use
  Company Number: KR-ACCORD-010281

PATIENT
  Age: 61 Year
  Sex: Male

DRUGS (5)
  1. OXALIPLATIN [Suspect]
     Indication: PANCREATIC CARCINOMA
     Dates: start: 20090601
  2. GEMCITABINE [Suspect]
     Indication: PANCREATIC CARCINOMA
     Dates: start: 20080801
  3. FLUOROURACIL [Suspect]
     Indication: PANCREATIC CARCINOMA
     Dates: start: 20090601
  4. CAPECITABINE [Concomitant]
  5. LEUCOVORIN CALCIUM [Concomitant]

REACTIONS (4)
  - BURNS SECOND DEGREE [None]
  - BILIARY SEPSIS [None]
  - ABDOMINAL PAIN [None]
  - LEUKOPENIA [None]
